FAERS Safety Report 9452393 (Version 2)
Quarter: 2013Q3

REPORT INFORMATION
  Report Type: Spontaneous
  Country: GB (occurrence: GB)
  Receive Date: 20130812
  Receipt Date: 20130819
  Transmission Date: 20140515
  Serious: Yes (Other)
  Sender: FDA-Public Use
  Company Number: GB-ACCORD-018834

PATIENT
  Age: 57 Year
  Sex: Female

DRUGS (3)
  1. TOPIRAMATE [Suspect]
     Indication: NEURALGIA
     Dosage: DOSAGE FORM: UNSPECIFIED
     Route: 048
     Dates: start: 20121217, end: 20121227
  2. CO-CODAMOL [Concomitant]
     Indication: NEURALGIA
     Dosage: 6-8/24 HOURS. STARTED MORE THAN TWO YEARS AGO AND ONGOING
     Route: 048
  3. DOSULEPIN [Concomitant]
     Indication: NEURALGIA
     Dosage: STARTED GREATER THAN ONE YEAR AGO AND ONGOING.
     Route: 048

REACTIONS (4)
  - Dysarthria [Recovered/Resolved]
  - Speech disorder [Recovered/Resolved]
  - Alexia [Recovered/Resolved]
  - Off label use [Unknown]
